FAERS Safety Report 8491795-9 (Version None)
Quarter: 2012Q2

REPORT INFORMATION
  Report Type: 
  Country: None (occurrence: None)
  Receive Date: 20120627
  Receipt Date: 20120619
  Transmission Date: 20120825
  Serious: Yes (Other)
  Sender: FDA-Public Use
  Company Number: JPI-P-022114

PATIENT
  Age: 62 Year
  Sex: Male

DRUGS (1)
  1. XYREM [Suspect]
     Indication: PRODUCT USED FOR UNKNOWN INDICATION
     Dosage: , ORAL
     Route: 048
     Dates: start: 20051007

REACTIONS (2)
  - EMPHYSEMA [None]
  - CARDIAC FAILURE CONGESTIVE [None]
